FAERS Safety Report 4675608-9 (Version None)
Quarter: 2005Q2

REPORT INFORMATION
  Report Type: 
  Country: None (occurrence: None)
  Receive Date: 20050527
  Receipt Date: 20050427
  Transmission Date: 20051028
  Serious: Yes (Hospitalization)
  Sender: FDA-Public Use
  Company Number: US-BRISTOL-MYERS SQUIBB COMPANY-12948113

PATIENT
  Age: 20 Year
  Sex: Female

DRUGS (2)
  1. ABILIFY [Suspect]
     Dosage: INITIATED AT 5 MG/DAY, INCREASED TO 10 MG/DAY
     Route: 048
  2. LEXAPRO [Concomitant]

REACTIONS (1)
  - DYSTONIA [None]
